FAERS Safety Report 7875673-1 (Version None)
Quarter: 2011Q4

REPORT INFORMATION
  Report Type: 
  Country: None (occurrence: None)
  Receive Date: 20111031
  Receipt Date: 20111026
  Transmission Date: 20120403
  Serious: Yes (Hospitalization)
  Sender: FDA-Public Use
  Company Number: PT-JNJFOC-20110903473

PATIENT
  Sex: Male
  Weight: 75 kg

DRUGS (5)
  1. ABIRATERONE [Suspect]
     Route: 048
     Dates: start: 20110829, end: 20110905
  2. ETORICOXIB [Concomitant]
     Indication: ILL-DEFINED DISORDER
     Route: 048
  3. ABIRATERONE [Suspect]
     Indication: PROSTATE CANCER METASTATIC
     Route: 048
     Dates: start: 20110915
  4. INDAPAMIDE [Concomitant]
     Indication: HYPERTENSION
     Route: 048
  5. IRBESARTAN + HYDROCHLOROTHIAZIDE [Concomitant]
     Indication: HYPERTENSION
     Route: 048

REACTIONS (3)
  - HYPOKALAEMIA [None]
  - MENTAL STATUS CHANGES [None]
  - HYPONATRAEMIA [None]
